FAERS Safety Report 19185548 (Version 1)
Quarter: 2021Q2

REPORT INFORMATION
  Report Type: Report from Study
  Country: GB (occurrence: GB)
  Receive Date: 20210427
  Receipt Date: 20210427
  Transmission Date: 20210717
  Serious: Yes (Hospitalization, Other)
  Sender: FDA-Public Use
  Company Number: GB-ACCORD-223158

PATIENT
  Age: 49 Year
  Sex: Female

DRUGS (2)
  1. HYRIMOZ [Suspect]
     Active Substance: ADALIMUMAB-ADAZ
     Indication: PSORIATIC ARTHROPATHY
     Dosage: 40 MG, (40/ 0.8 MG/ ML (EOW))
     Route: 058
     Dates: start: 20190723
  2. METHOTREXATE. [Suspect]
     Active Substance: METHOTREXATE
     Indication: PRODUCT USED FOR UNKNOWN INDICATION
     Route: 065

REACTIONS (13)
  - Arthritis [Unknown]
  - Herpes zoster [Unknown]
  - Vomiting projectile [Unknown]
  - Drug-induced liver injury [Unknown]
  - Weight decreased [Unknown]
  - Muscle spasms [Unknown]
  - Blood iron increased [Unknown]
  - Illness [Unknown]
  - Psoriasis [Unknown]
  - Hyperkeratosis [Unknown]
  - Urinary tract infection [Unknown]
  - Arthralgia [Unknown]
  - Injury [Unknown]
